FAERS Safety Report 4661390-8 (Version None)
Quarter: 2005Q2

REPORT INFORMATION
  Report Type: 
  Country: None (occurrence: None)
  Receive Date: 20050512
  Receipt Date: 20050111
  Transmission Date: 20051028
  Serious: Yes (Other)
  Sender: FDA-Public Use
  Company Number: 05-05-0792

PATIENT
  Sex: Female

DRUGS (8)
  1. FUROSEMIDE [Suspect]
     Dosage: TRANSPLACENTAL
     Route: 064
  2. SPIRONOLACTONE [Suspect]
     Dosage: TRANSPLACENTAL
     Route: 064
  3. PENICILLAMINE [Suspect]
     Dosage: TRANSPLACENTAL
     Route: 064
  4. DEXAMETHASONE [Suspect]
     Dosage: TRANSPLACENTAL
     Route: 064
  5. POTASSIUM CHLORIDE [Suspect]
     Dosage: TRANSPLACENTAL
     Route: 064
  6. PARACETAMOL [Suspect]
     Dosage: TRANSPLACENTAL
     Route: 064
  7. ACETYLSALICYLIC ACID [Concomitant]
     Dosage: TRANSPLACENTAL
     Route: 064
  8. FERROGRAD [Suspect]
     Dosage: TRANSPLACENTAL
     Route: 064

REACTIONS (2)
  - ADRENOGENITAL SYNDROME [None]
  - DRUG EXPOSURE DURING PREGNANCY [None]
